FAERS Safety Report 5223430-7 (Version None)
Quarter: 2007Q1

REPORT INFORMATION
  Report Type: 
  Country: None (occurrence: None)
  Receive Date: 20070125
  Receipt Date: 20070119
  Transmission Date: 20070707
  Serious: Yes (Death)
  Sender: FDA-Public Use
  Company Number: JPI-P-000380

PATIENT
  Age: 63 Year
  Sex: Male

DRUGS (1)
  1. ANTIZOL (FOMEPIZOLE) [Suspect]
     Indication: CHEMICAL POISONING

REACTIONS (3)
  - CEREBROVASCULAR ACCIDENT [None]
  - HAEMODIALYSIS [None]
  - METABOLIC ACIDOSIS [None]
